FAERS Safety Report 21290613 (Version 2)
Quarter: 2022Q3

REPORT INFORMATION
  Report Type: Spontaneous
  Country: FR (occurrence: FR)
  Receive Date: 20220903
  Receipt Date: 20220906
  Transmission Date: 20221026
  Serious: Yes (Hospitalization, Disabling)
  Sender: FDA-Public Use
  Company Number: FR-ROCHE-3085611

PATIENT
  Age: 77 Year
  Sex: Male
  Weight: 55 kg

DRUGS (8)
  1. IRINOTECAN [Suspect]
     Active Substance: IRINOTECAN
     Indication: Neoplasm
     Dosage: 230 MILLIGRAM (2 WEEKS) (DATE OF MOST RECENT DOSE(230 MG)
     Route: 042
     Dates: start: 20220310, end: 20220310
  2. OXALIPLATIN [Suspect]
     Active Substance: OXALIPLATIN
     Indication: Neoplasm
     Dosage: 135 MILLIGRAM (2 WEEKS) (DATE OF MOST RECENT DOSE (135 MG)
     Route: 042
     Dates: start: 20220310
  3. FOLIC ACID [Suspect]
     Active Substance: FOLIC ACID
     Indication: Neoplasm
     Dosage: 624 MILLIGRAM (2 WEEKS) (DATE OF MOST RECENT DOSE OF PRIOR TO AE/SAE ONSET 10/MAR/2022)
     Route: 042
     Dates: start: 20220310
  4. FLUOROURACIL [Suspect]
     Active Substance: FLUOROURACIL
     Indication: Neoplasm
     Dosage: 3750 MILLIGRAM (2 WEEKS)
     Route: 042
     Dates: start: 20220310
  5. ACETAMINOPHEN [Concomitant]
     Active Substance: ACETAMINOPHEN
     Indication: Product used for unknown indication
     Dosage: UNK
     Route: 065
  6. SILODOSIN [Concomitant]
     Active Substance: SILODOSIN
     Indication: Product used for unknown indication
     Dosage: UNK
     Route: 065
  7. TRAMADOL [Concomitant]
     Active Substance: TRAMADOL
     Indication: Product used for unknown indication
     Dosage: UNK
     Route: 065
  8. CANDESARTAN CILEXETIL [Concomitant]
     Active Substance: CANDESARTAN CILEXETIL
     Indication: Product used for unknown indication
     Dosage: UNK
     Route: 065

REACTIONS (3)
  - Anaemia [Recovered/Resolved]
  - Condition aggravated [Recovered/Resolved]
  - Dehydration [Recovered/Resolved]

NARRATIVE: CASE EVENT DATE: 20220318
